FAERS Safety Report 11359026 (Version 2)
Quarter: 2015Q3

REPORT INFORMATION
  Report Type: Spontaneous
  Country: US (occurrence: None)
  Receive Date: 20150723
  Receipt Date: 20150820
  Transmission Date: 20151125
  Serious: Yes (Other)
  Sender: FDA-Public Use
  Company Number: 1713747-2015-999220

PATIENT
  Age: 57 Year
  Sex: Male
  Weight: 135 kg

DRUGS (17)
  1. TORSEMIDE. [Concomitant]
     Active Substance: TORSEMIDE
  2. LIBERTY CYCLER CASSETTE [Concomitant]
     Active Substance: DEVICE
  3. DEMADEX [Concomitant]
     Active Substance: TORSEMIDE
  4. FOSRENOL [Concomitant]
     Active Substance: LANTHANUM CARBONATE
  5. LEVOTHYROXINE. [Concomitant]
     Active Substance: LEVOTHYROXINE
  6. TERAZOSIN [Concomitant]
     Active Substance: TERAZOSIN\TERAZOSIN HYDROCHLORIDE
  7. DELFLEX [Suspect]
     Active Substance: CALCIUM CHLORIDE\DEXTROSE MONOHYDRATE\MAGNESIUM CHLORIDE\SODIUM CHLORIDE\SODIUM LACTATE
     Indication: PERITONEAL DIALYSIS
     Route: 033
  8. HEPARIN [Concomitant]
     Active Substance: HEPARIN SODIUM
  9. LIBERTY CYCLER [Concomitant]
     Active Substance: DEVICE
  10. LANTHANUM CARBONATE. [Concomitant]
     Active Substance: LANTHANUM CARBONATE
  11. SENSIPAR [Concomitant]
     Active Substance: CINACALCET HYDROCHLORIDE
  12. OMEPRAZOLE. [Concomitant]
     Active Substance: OMEPRAZOLE
  13. ALLOPURINOL. [Concomitant]
     Active Substance: ALLOPURINOL
  14. COLACE [Concomitant]
     Active Substance: DOCUSATE SODIUM
  15. MIRALAX [Concomitant]
     Active Substance: POLYETHYLENE GLYCOL 3350
  16. METOPROLOL [Concomitant]
     Active Substance: METOPROLOL
  17. ASPIRIN. [Concomitant]
     Active Substance: ASPIRIN

REACTIONS (1)
  - Peritonitis [None]

NARRATIVE: CASE EVENT DATE: 20150715
